FAERS Safety Report 5361134-0 (Version None)
Quarter: 2007Q2

REPORT INFORMATION
  Report Type: 
  Country: None (occurrence: None)
  Receive Date: 20070614
  Receipt Date: 20070605
  Transmission Date: 20071010
  Serious: Yes (Life-Threatening)
  Sender: FDA-Public Use
  Company Number: GXKR2007GB04860

PATIENT
  Age: 27 Year
  Sex: Female
  Weight: 67.9 kg

DRUGS (2)
  1. CEFUROXIME [Suspect]
     Indication: ANAESTHESIA
     Dosage: 1.5 G, INTRAVENOUS
     Route: 042
     Dates: start: 20070419, end: 20070419
  2. PROPOFOL [Suspect]
     Indication: PROPHYLAXIS
     Dosage: 200 MG, INTRAVENOUS
     Route: 042
     Dates: start: 20070419, end: 20070419

REACTIONS (3)
  - BRADYCARDIA [None]
  - BRONCHOSPASM [None]
  - RASH [None]
